FAERS Safety Report 7089429-3 (Version None)
Quarter: 2010Q4

REPORT INFORMATION
  Report Type: 
  Country: None (occurrence: None)
  Receive Date: 20101108
  Receipt Date: 20101029
  Transmission Date: 20110411
  Serious: Yes (Hospitalization)
  Sender: FDA-Public Use
  Company Number: GXKR2010US12294

PATIENT
  Age: 87 Year
  Sex: Female
  Weight: 49 kg

DRUGS (9)
  1. LIDOCAINE [Interacting]
     Indication: VENTRICULAR TACHYCARDIA
     Dosage: 50 MG, 3 TIMES
     Route: 040
  2. LIDOCAINE [Interacting]
     Dosage: 2 MG/MINUTE
     Route: 041
  3. LIDOCAINE [Interacting]
     Dosage: 4 MG/MINUTE
     Route: 041
  4. AMIODARONE HCL [Suspect]
     Dosage: 150 MG, UNK
     Route: 042
  5. AMIODARONE HCL [Interacting]
     Dosage: 1 MG/MINUTE
     Route: 041
  6. ACETYLSALICYLIC ACID [Concomitant]
     Dosage: 325 MG, UNK
     Route: 048
  7. TIMOLOL [Concomitant]
  8. DIAZEPAM [Concomitant]
  9. VERAPAMIL [Concomitant]

REACTIONS (7)
  - DRUG INTERACTION [None]
  - GAZE PALSY [None]
  - MENTAL STATUS CHANGES [None]
  - NEUROLOGICAL DECOMPENSATION [None]
  - PUPIL FIXED [None]
  - SOMNOLENCE [None]
  - SPEECH DISORDER [None]
